FAERS Safety Report 17364668 (Version 1)
Quarter: 2020Q1

REPORT INFORMATION
  Report Type: Spontaneous
  Country: US (occurrence: US)
  Receive Date: 20200204
  Receipt Date: 20200204
  Transmission Date: 20200409
  Serious: No
  Sender: FDA-Public Use
  Company Number: US-LUPIN PHARMACEUTICALS INC.-2019-03137

PATIENT
  Age: 68 Year
  Sex: Male

DRUGS (3)
  1. ESCITALOPRAM [Suspect]
     Active Substance: ESCITALOPRAM OXALATE
     Indication: SEXUALLY INAPPROPRIATE BEHAVIOUR
     Dosage: UNK
     Route: 065
  2. DONEPEZIL. [Concomitant]
     Active Substance: DONEPEZIL
     Indication: DEMENTIA
     Dosage: 10 MILLIGRAM
     Route: 065
  3. MEMANTINE. [Concomitant]
     Active Substance: MEMANTINE
     Indication: DEMENTIA
     Dosage: 10 MILLIGRAM, QD
     Route: 065

REACTIONS (3)
  - Condition aggravated [Recovering/Resolving]
  - Sexually inappropriate behaviour [Recovering/Resolving]
  - Drug intolerance [Recovering/Resolving]
